FAERS Safety Report 5092762-8 (Version None)
Quarter: 2006Q3

REPORT INFORMATION
  Report Type: 
  Country: None (occurrence: None)
  Receive Date: 20060830
  Receipt Date: 20060609
  Transmission Date: 20061208
  Serious: Yes (Other)
  Sender: FDA-Public Use
  Company Number: GB-ABBOTT-06P-167-0336032-00

PATIENT
  Sex: Male

DRUGS (5)
  1. HUMIRA [Suspect]
     Indication: RHEUMATOID ARTHRITIS
     Route: 058
     Dates: start: 20060309, end: 20060607
  2. METHOTREXATE [Concomitant]
     Indication: RHEUMATOID ARTHRITIS
     Route: 058
  3. PREDNISOLONE [Concomitant]
     Indication: RHEUMATOID ARTHRITIS
     Route: 048
  4. AMLODIPINE [Concomitant]
     Indication: HYPERTENSION
     Route: 048
     Dates: start: 20060505
  5. CALCICHEW D FORTE [Concomitant]
     Indication: OSTEOPOROSIS
     Route: 048

REACTIONS (6)
  - ABDOMINAL PAIN UPPER [None]
  - COUGH [None]
  - FEELING COLD [None]
  - LETHARGY [None]
  - PHARYNGOLARYNGEAL PAIN [None]
  - VOMITING [None]
